FAERS Safety Report 7757389-5 (Version None)
Quarter: 2011Q3

REPORT INFORMATION
  Report Type: 
  Country: None (occurrence: None)
  Receive Date: 20110916
  Receipt Date: 20110906
  Transmission Date: 20111222
  Serious: Yes (Death)
  Sender: FDA-Public Use
  Company Number: JP-ACTELION-A-JP2009-25388

PATIENT
  Sex: Female
  Weight: 67 kg

DRUGS (16)
  1. ETIZOLAM [Concomitant]
  2. SULPIRIDE [Concomitant]
  3. CARBOCISTEINE [Concomitant]
  4. FUROSEMIDE [Concomitant]
  5. FAMOTIDINE [Concomitant]
  6. ISOSORBIDE DINITRATE [Concomitant]
  7. CARVEDILOL [Concomitant]
  8. CHLORPROMAZINE [Concomitant]
  9. MAGNESIUM OXIDE [Concomitant]
  10. TRACLEER [Suspect]
     Indication: PULMONARY ARTERIAL HYPERTENSION
     Dosage: 125 MG, BID
     Route: 048
     Dates: start: 20090214, end: 20090530
  11. TRACLEER [Suspect]
     Dosage: 62.5 MG, BID
     Route: 048
     Dates: start: 20071202, end: 20080213
  12. KETOPROFEN [Concomitant]
  13. CILNIDIPINE [Concomitant]
  14. PAROXETINE HCL [Concomitant]
  15. RILMAZAFONE [Concomitant]
  16. OXYGEN [Concomitant]

REACTIONS (10)
  - RESPIRATORY DISORDER [None]
  - GASTROINTESTINAL HAEMORRHAGE [None]
  - ENDOTRACHEAL INTUBATION [None]
  - TRAUMATIC INTRACRANIAL HAEMORRHAGE [None]
  - SUBARACHNOID HAEMORRHAGE [None]
  - CONVULSION [None]
  - BRAIN OEDEMA [None]
  - FALL [None]
  - SURGERY [None]
  - PUPILS UNEQUAL [None]
